FAERS Safety Report 7371090-1 (Version None)
Quarter: 2011Q1

REPORT INFORMATION
  Report Type: 
  Country: None (occurrence: None)
  Receive Date: 20110324
  Receipt Date: 20110303
  Transmission Date: 20110831
  Serious: Yes (Death, Other)
  Sender: FDA-Public Use
  Company Number: US-BAYER-201010371NA

PATIENT
  Sex: Female
  Weight: 56 kg

DRUGS (14)
  1. TRASYLOL [Suspect]
     Indication: HEART VALVE REPLACEMENT
  2. DOBUTAMINE [Concomitant]
     Dosage: 8 MCG/KG/MIN
     Route: 042
     Dates: start: 20051011, end: 20051011
  3. ASPIRIN [Concomitant]
     Dosage: 325 MG, QD
     Route: 048
  4. DIOVAN HCT [Concomitant]
     Dosage: 160-12.5 MG QD
     Route: 048
  5. PLAVIX [Concomitant]
     Indication: RENAL ARTERY STENT PLACEMENT
     Dosage: 75 MG, QD
     Route: 048
  6. HYDROCHLOROTHIAZIDE [Concomitant]
     Dosage: 25 MG, QD
  7. NICARDIPINE HYDROCHLORIDE [Concomitant]
     Dosage: UNK
     Route: 042
     Dates: start: 20051011, end: 20051011
  8. NITROGLYCERIN [Concomitant]
     Dosage: UNK
     Route: 042
     Dates: start: 20051011
  9. TOPROL-XL [Concomitant]
     Dosage: 100 MG, QD
     Route: 048
  10. MILRINONE [Concomitant]
     Dosage: 0.25 MG/KG/MIN
     Route: 042
     Dates: start: 20051011, end: 20051011
  11. LIPITOR [Concomitant]
     Dosage: 10 MG, QD
     Route: 048
  12. POTASSIUM CHLORIDE [Concomitant]
     Indication: HYPOKALAEMIA
     Dosage: 20 MEQ, QD
     Route: 048
     Dates: start: 20050801
  13. EPINEPHRINE [Concomitant]
     Dosage: 5 MCG/KG/MIN
     Dates: start: 20051011, end: 20051011
  14. TRASYLOL [Suspect]
     Indication: CORONARY ARTERY BYPASS
     Dosage: 200CC FOLLOWED BY A 50CC/HR DRIP
     Route: 042
     Dates: start: 20051010

REACTIONS (12)
  - INJURY [None]
  - RENAL IMPAIRMENT [None]
  - RENAL INJURY [None]
  - ANHEDONIA [None]
  - RENAL FAILURE [None]
  - STRESS [None]
  - ANXIETY [None]
  - FEAR [None]
  - DEATH [None]
  - PAIN [None]
  - UNEVALUABLE EVENT [None]
  - EMOTIONAL DISTRESS [None]
